FAERS Safety Report 4508227-5 (Version None)
Quarter: 2004Q4

REPORT INFORMATION
  Report Type: 
  Country: None (occurrence: None)
  Receive Date: 20041123
  Receipt Date: 20031120
  Transmission Date: 20050328
  Serious: No
  Sender: FDA-Public Use
  Company Number: US-GLAXOSMITHKLINE-A0440592A

PATIENT
  Age: 69 Year
  Sex: Male

DRUGS (6)
  1. WELLBUTRIN [Suspect]
     Indication: DEPRESSION
     Dosage: 150MG PER DAY
     Route: 048
     Dates: end: 20031021
  2. LIPITOR [Concomitant]
  3. LOTREL [Concomitant]
  4. HYTRIN [Concomitant]
  5. ALLOPURINOL [Concomitant]
  6. LEXAPRO [Concomitant]

REACTIONS (2)
  - BLOOD CREATININE DECREASED [None]
  - BLOOD UREA DECREASED [None]
